FAERS Safety Report 15081921 (Version 1)
Quarter: 2018Q2

REPORT INFORMATION
  Report Type: Spontaneous
  Country: US (occurrence: US)
  Receive Date: 20180628
  Receipt Date: 20180628
  Transmission Date: 20180711
  Serious: No
  Sender: FDA-Public Use
  Company Number: US-PFIZER INC-2018260321

PATIENT
  Age: 50 Year
  Sex: Male
  Weight: 95.25 kg

DRUGS (4)
  1. LASIX [Concomitant]
     Active Substance: FUROSEMIDE
     Indication: SWELLING
     Dosage: 20 MG, 1X/DAY
     Route: 048
  2. ZYVOX [Suspect]
     Active Substance: LINEZOLID
     Indication: OSTEOMYELITIS
     Dosage: 600 MG, 2X/DAY (TWICE DAILY)
     Route: 048
     Dates: start: 201802
  3. NOVOLOG [Concomitant]
     Active Substance: INSULIN ASPART
     Indication: DIABETES MELLITUS
     Dosage: UNK (15-20UNITS/ML SLIDING SCALE INJECTION)
  4. LEVEMIR [Concomitant]
     Active Substance: INSULIN DETEMIR
     Indication: DIABETES MELLITUS
     Dosage: 60 IU, 1X/DAY (60 UNITS INJECTION AT NIGHT ONCE DAILY)

REACTIONS (2)
  - Red blood cell sedimentation rate decreased [Unknown]
  - Product prescribing issue [Unknown]
